FAERS Safety Report 5368940-7 (Version None)
Quarter: 2007Q2

REPORT INFORMATION
  Report Type: 
  Country: None (occurrence: None)
  Receive Date: 20070621
  Receipt Date: 20070621
  Transmission Date: 20071010
  Serious: Yes (Other)
  Sender: FDA-Public Use
  Company Number: None

PATIENT
  Age: 62 Year
  Sex: Female
  Weight: 80.7403 kg

DRUGS (1)
  1. AMLODIPINE BESYLATE [Suspect]
     Dosage: PILL A DAY PO
     Route: 048
     Dates: start: 20070413, end: 20070422

REACTIONS (9)
  - ARTHRALGIA [None]
  - ECONOMIC PROBLEM [None]
  - INSOMNIA [None]
  - JOINT SWELLING [None]
  - NO THERAPEUTIC RESPONSE [None]
  - OEDEMA PERIPHERAL [None]
  - PAIN IN EXTREMITY [None]
  - PHARMACEUTICAL PRODUCT COMPLAINT [None]
  - STRESS [None]
